FAERS Safety Report 4877599-4 (Version None)
Quarter: 2006Q1

REPORT INFORMATION
  Report Type: 
  Country: None (occurrence: None)
  Receive Date: 20060109
  Receipt Date: 20051227
  Transmission Date: 20060701
  Serious: Yes (Disabling, Other)
  Sender: FDA-Public Use
  Company Number: 2005173311

PATIENT
  Sex: Female
  Weight: 131.5431 kg

DRUGS (10)
  1. CELEBREX [Suspect]
     Indication: ARTHRITIS
     Dosage: 200 MG (200 MG, 1 IN 1 D),
  2. CELEBREX [Suspect]
     Indication: PAIN
     Dosage: 200 MG (200 MG, 1 IN 1 D),
  3. HUMULIN (INSULIN HUMAN, INSULIN ISOPHANE, HUMAN BIOSYNTHETIC) [Concomitant]
  4. GLUCOVANCE [Concomitant]
  5. CELEXA [Concomitant]
  6. CRESTOR [Concomitant]
  7. NEXIUM [Concomitant]
  8. BENICAR [Concomitant]
  9. VERELAN (VERAPAMIL HYDROCHLORIDE) [Concomitant]
  10. ZANAFLEX [Concomitant]

REACTIONS (4)
  - ARTHRITIS [None]
  - CONDITION AGGRAVATED [None]
  - KNEE ARTHROPLASTY [None]
  - UNEMPLOYMENT [None]
